FAERS Safety Report 9761559 (Version 2)
Quarter: 2013Q4

REPORT INFORMATION
  Report Type: Spontaneous
  Country: BR (occurrence: BR)
  Receive Date: 20131216
  Receipt Date: 20131216
  Transmission Date: 20140711
  Serious: Yes (Other)
  Sender: FDA-Public Use
  Company Number: PHHY2013BR135726

PATIENT
  Sex: Female

DRUGS (1)
  1. RAZAPINA [Suspect]
     Dosage: 15 MG, UNK
     Route: 048
     Dates: start: 20131102

REACTIONS (14)
  - Dengue fever [Unknown]
  - Malaise [Recovering/Resolving]
  - Abdominal pain upper [Recovering/Resolving]
  - Hyperchlorhydria [Recovering/Resolving]
  - Gastrointestinal pain [Recovering/Resolving]
  - Feeling abnormal [Recovering/Resolving]
  - Chills [Recovering/Resolving]
  - Pyrexia [Recovering/Resolving]
  - Headache [Recovering/Resolving]
  - Vomiting [Recovering/Resolving]
  - Rash [Unknown]
  - Rash erythematous [Unknown]
  - Tremor [Unknown]
  - Arthralgia [Unknown]
